FAERS Safety Report 6932944-0 (Version None)
Quarter: 2010Q3

REPORT INFORMATION
  Report Type: 
  Country: None (occurrence: None)
  Receive Date: 20100819
  Receipt Date: 20100811
  Transmission Date: 20110219
  Serious: Yes (Death)
  Sender: FDA-Public Use
  Company Number: US-GILEAD-2010-0030883

PATIENT
  Sex: Male
  Weight: 99.88 kg

DRUGS (6)
  1. LETAIRIS [Suspect]
     Indication: PULMONARY ARTERIAL HYPERTENSION
     Route: 048
     Dates: start: 20090131, end: 20100808
  2. BUPROPION HCL [Concomitant]
  3. ACYCLOVIR [Concomitant]
  4. SYNTHROID [Concomitant]
  5. ZOLOFT [Concomitant]
  6. LOVENOX [Concomitant]

REACTIONS (1)
  - DEATH [None]
